FAERS Safety Report 4972440-3 (Version None)
Quarter: 2006Q2

REPORT INFORMATION
  Report Type: 
  Country: None (occurrence: None)
  Receive Date: 20060413
  Receipt Date: 20050520
  Transmission Date: 20061013
  Serious: Yes (Death, Hospitalization)
  Sender: FDA-Public Use
  Company Number: US-MERCK-0505USA02570

PATIENT
  Age: 85 Year
  Sex: Male
  Weight: 80 kg

DRUGS (5)
  1. VIOXX [Suspect]
     Indication: PAIN IN EXTREMITY
     Route: 048
     Dates: start: 20030801, end: 20040501
  2. COUMADIN [Concomitant]
     Route: 065
  3. LASIX [Concomitant]
     Route: 065
  4. TOPROL-XL [Concomitant]
     Route: 065
  5. LANOXIN [Concomitant]
     Route: 065

REACTIONS (5)
  - CEREBRAL HAEMORRHAGE [None]
  - COAGULOPATHY [None]
  - COMA [None]
  - HAEMORRHAGIC STROKE [None]
  - MYOCARDIAL INFARCTION [None]
